FAERS Safety Report 12993254 (Version 1)
Quarter: 2016Q4

REPORT INFORMATION
  Report Type: Spontaneous
  Country: FR (occurrence: FR)
  Receive Date: 20161202
  Receipt Date: 20161202
  Transmission Date: 20170207
  Serious: Yes (Hospitalization)
  Sender: FDA-Public Use
  Company Number: FR-AUROBINDO-AUR-APL-2016-14701

PATIENT
  Age: 32 Year
  Sex: Female

DRUGS (8)
  1. ESOMEPRAZOLE 40MG [Suspect]
     Active Substance: ESOMEPRAZOLE
     Indication: PRODUCT USED FOR UNKNOWN INDICATION
     Dosage: 40 MG, ONCE A DAY
     Route: 048
     Dates: end: 20160424
  2. PARACETAMOL [Suspect]
     Active Substance: ACETAMINOPHEN
     Indication: PAIN
     Dosage: UNK
     Route: 048
     Dates: end: 20160424
  3. SKENAN [Suspect]
     Active Substance: MORPHINE SULFATE
     Indication: ANKYLOSING SPONDYLITIS
     Dosage: 20 MG, TWO TIMES A DAY
     Route: 048
     Dates: start: 20160423, end: 20160424
  4. SERESTA [Suspect]
     Active Substance: OXAZEPAM
     Indication: PRODUCT USED FOR UNKNOWN INDICATION
     Dosage: 50 MG, ONCE A DAY
     Route: 048
  5. TRAMADOL. [Suspect]
     Active Substance: TRAMADOL
     Indication: PRODUCT USED FOR UNKNOWN INDICATION
     Dosage: 200 MG IN THE MORNING AND 100 MG IN THE EVENING
     Route: 048
     Dates: end: 20160424
  6. SIMPONI [Suspect]
     Active Substance: GOLIMUMAB
     Indication: ANKYLOSING SPONDYLITIS
     Dosage: UNK
     Route: 058
     Dates: start: 201501
  7. CORTANCYL [Suspect]
     Active Substance: PREDNISONE
     Indication: ANKYLOSING SPONDYLITIS
     Dosage: 50 MG, ONCE IN 3 WEEKS
     Route: 048
     Dates: start: 20160408, end: 20160422
  8. NOVORAPID [Suspect]
     Active Substance: INSULIN ASPART
     Indication: PRODUCT USED FOR UNKNOWN INDICATION
     Dosage: UNK
     Route: 058

REACTIONS (1)
  - Pancreatitis acute [Recovered/Resolved]

NARRATIVE: CASE EVENT DATE: 20160424
